FAERS Safety Report 8214312-7 (Version None)
Quarter: 2012Q1

REPORT INFORMATION
  Report Type: 
  Country: None (occurrence: None)
  Receive Date: 20120316
  Receipt Date: 20120308
  Transmission Date: 20120608
  Serious: Yes (Hospitalization)
  Sender: FDA-Public Use
  Company Number: CA-JNJFOC-20120209111

PATIENT
  Sex: Female
  Weight: 71.67 kg

DRUGS (1)
  1. USTIKINUMAB [Suspect]
     Indication: PSORIASIS
     Route: 058
     Dates: start: 20100201

REACTIONS (1)
  - EPIGLOTTITIS [None]
